FAERS Safety Report 22243117 (Version 1)
Quarter: 2023Q2

REPORT INFORMATION
  Report Type: Spontaneous
  Country: US (occurrence: None)
  Receive Date: 20230421
  Receipt Date: 20230421
  Transmission Date: 20230722
  Serious: Yes (Other)
  Sender: FDA-Public Use
  Company Number: None

PATIENT
  Age: 4 Year
  Sex: Male
  Weight: 18.2 kg

DRUGS (1)
  1. TACROLIMUS [Suspect]
     Active Substance: TACROLIMUS
     Indication: Eczema
     Dates: start: 20230417, end: 20230419

REACTIONS (3)
  - Rash vesicular [None]
  - Eczema herpeticum [None]
  - Application site rash [None]

NARRATIVE: CASE EVENT DATE: 20230419
